FAERS Safety Report 4714213-2 (Version None)
Quarter: 2005Q3

REPORT INFORMATION
  Report Type: 
  Country: None (occurrence: None)
  Receive Date: 20050714
  Receipt Date: 20050517
  Transmission Date: 20060218
  Serious: Yes (Other)
  Sender: FDA-Public Use
  Company Number: 2005AP02949

PATIENT
  Age: 18552 Day
  Sex: Male
  Weight: 59 kg

DRUGS (4)
  1. IRESSA [Suspect]
     Indication: COLON CANCER
     Route: 048
     Dates: start: 20050510, end: 20050511
  2. IRESSA [Suspect]
     Route: 048
     Dates: start: 20050530
  3. CETUXIMAB [Suspect]
     Indication: COLON CANCER
     Route: 042
     Dates: start: 20050510, end: 20050510
  4. CETUXIMAB [Suspect]
     Route: 042
     Dates: start: 20050524, end: 20050524

REACTIONS (1)
  - DEAFNESS BILATERAL [None]
